FAERS Safety Report 6720100-0 (Version None)
Quarter: 2010Q2

REPORT INFORMATION
  Report Type: 
  Country: None (occurrence: None)
  Receive Date: 20100506
  Receipt Date: 20100421
  Transmission Date: 20101027
  Serious: No
  Sender: FDA-Public Use
  Company Number: 20108092

PATIENT
  Age: 71 Year
  Sex: Female

DRUGS (1)
  1. BACLOFEN [Suspect]
     Indication: MUSCLE SPASTICITY
     Dosage: 22 - 100 MCG, DAILY, INTRATHECAL - S
     Route: 037

REACTIONS (1)
  - DEEP VEIN THROMBOSIS [None]
